FAERS Safety Report 6767285-8 (Version None)
Quarter: 2010Q2

REPORT INFORMATION
  Report Type: 
  Country: None (occurrence: None)
  Receive Date: 20100614
  Receipt Date: 20100603
  Transmission Date: 20101027
  Serious: Yes (Hospitalization)
  Sender: FDA-Public Use
  Company Number: AU-JNJFOC-20100108375

PATIENT
  Sex: Female
  Weight: 92.5 kg

DRUGS (4)
  1. REMICADE [Suspect]
     Indication: CROHN'S DISEASE
     Route: 042
  2. REMICADE [Suspect]
     Dosage: 1ST DOSE OF MAINTENANCE
     Route: 042
  3. REMICADE [Suspect]
     Route: 042
  4. PHENERGAN [Concomitant]
     Indication: PREMEDICATION

REACTIONS (6)
  - ABDOMINAL PAIN [None]
  - ANGIOPATHY [None]
  - BLOOD PRESSURE DECREASED [None]
  - DIARRHOEA [None]
  - DIVERTICULITIS [None]
  - INTESTINAL PERFORATION [None]
